FAERS Safety Report 10608006 (Version 1)
Quarter: 2014Q4

REPORT INFORMATION
  Report Type: Spontaneous
  Country: US (occurrence: US)
  Receive Date: 20141125
  Receipt Date: 20141125
  Transmission Date: 20150529
  Serious: No
  Sender: FDA-Public Use
  Company Number: US-BRISTOL-MYERS SQUIBB COMPANY-21302112

PATIENT
  Age: 64 Year
  Sex: Male
  Weight: 106.57 kg

DRUGS (3)
  1. FARXIGA [Suspect]
     Active Substance: DAPAGLIFLOZIN PROPANEDIOL
  2. ASPIRIN. [Concomitant]
     Active Substance: ASPIRIN
  3. ANDROGEL [Concomitant]
     Active Substance: TESTOSTERONE

REACTIONS (3)
  - Dehydration [Unknown]
  - Rash [Recovering/Resolving]
  - Weight decreased [Unknown]
